FAERS Safety Report 8085097-2 (Version None)
Quarter: 2012Q1

REPORT INFORMATION
  Report Type: 
  Country: None (occurrence: None)
  Receive Date: 20120128
  Receipt Date: 20110321
  Transmission Date: 20120608
  Serious: No
  Sender: FDA-Public Use
  Company Number: US-ABBOTT-11P-163-0713875-00

PATIENT
  Sex: Female
  Weight: 44.946 kg

DRUGS (6)
  1. HUMIRA [Suspect]
  2. METHOTREXATE [Concomitant]
     Indication: RHEUMATOID ARTHRITIS
  3. CELEBREX [Concomitant]
     Indication: RHEUMATOID ARTHRITIS
  4. LEUKOVORIN [Concomitant]
     Indication: VITAMIN SUPPLEMENTATION
  5. VITAMIN TAB [Concomitant]
     Indication: VITAMIN SUPPLEMENTATION
  6. HUMIRA [Suspect]
     Indication: RHEUMATOID ARTHRITIS
     Dates: start: 20090101

REACTIONS (3)
  - SINUSITIS [None]
  - PYREXIA [None]
  - ACNE [None]
